FAERS Safety Report 5737531-8 (Version None)
Quarter: 2008Q2

REPORT INFORMATION
  Report Type: 
  Country: None (occurrence: None)
  Receive Date: 20080512
  Receipt Date: 20080512
  Transmission Date: 20081010
  Serious: Yes (Life-Threatening)
  Sender: FDA-Public Use
  Company Number: None

PATIENT
  Sex: Male

DRUGS (1)
  1. ATORVASTATIN CALCIUM [Suspect]
     Indication: PERIPHERAL VASCULAR DISORDER
     Dosage: 80 MG QHS PO
     Route: 048
     Dates: end: 20080422

REACTIONS (5)
  - DIALYSIS [None]
  - FASCIOTOMY [None]
  - RENAL FAILURE ACUTE [None]
  - RHABDOMYOLYSIS [None]
  - THROMBOEMBOLECTOMY [None]
